FAERS Safety Report 16243821 (Version 3)
Quarter: 2019Q2

REPORT INFORMATION
  Report Type: Spontaneous
  Country: US (occurrence: US)
  Receive Date: 20190426
  Receipt Date: 20190525
  Transmission Date: 20190711
  Serious: No
  Sender: FDA-Public Use
  Company Number: PHEH2019US017430

PATIENT
  Sex: Male

DRUGS (3)
  1. LENVATINIB [Suspect]
     Active Substance: LENVATINIB
     Dosage: 14 MG, QD
     Route: 048
  2. LENVATINIB [Suspect]
     Active Substance: LENVATINIB
     Indication: RENAL CANCER
     Dosage: 18 MG, QD
     Route: 048
     Dates: start: 20190416
  3. AFINITOR [Suspect]
     Active Substance: EVEROLIMUS
     Indication: RENAL CANCER
     Dosage: 5 MG, QD
     Route: 048
     Dates: start: 20190416

REACTIONS (9)
  - Vomiting [Unknown]
  - Feeling abnormal [Recovered/Resolved]
  - Aphonia [Unknown]
  - Eating disorder [Unknown]
  - Dizziness [Recovered/Resolved]
  - Bone pain [Unknown]
  - Musculoskeletal pain [Unknown]
  - Hypoaesthesia [Recovered/Resolved]
  - Weight decreased [Unknown]
